FAERS Safety Report 9036647 (Version 1)
Quarter: 2013Q1

REPORT INFORMATION
  Report Type: Spontaneous
  Country: US (occurrence: None)
  Receive Date: 20130114
  Receipt Date: 20130114
  Transmission Date: 20140127
  Serious: Yes (Other)
  Sender: FDA-Public Use
  Company Number: 2013-00006

PATIENT
  Age: 17 Year
  Sex: Male
  Weight: 111.13 kg

DRUGS (1)
  1. ZICAM INTENSE SINUS RELIEF NASAL GEL [Suspect]
     Indication: NASOPHARYNGITIS
     Dates: start: 20121230

REACTIONS (4)
  - Nasal discomfort [None]
  - Nasal oedema [None]
  - Blood pressure increased [None]
  - No therapeutic response [None]
